FAERS Safety Report 24813673 (Version 1)
Quarter: 2025Q1

REPORT INFORMATION
  Report Type: Spontaneous
  Country: US (occurrence: US)
  Receive Date: 20250107
  Receipt Date: 20250107
  Transmission Date: 20250409
  Serious: Yes (Life-Threatening, Hospitalization, Other)
  Sender: AMGEN
  Company Number: US-AMGEN-USASP2025000015

PATIENT
  Age: 75 Year
  Sex: Female

DRUGS (1)
  1. PREDNISONE [Suspect]
     Active Substance: PREDNISONE
     Indication: Myasthenia gravis
     Route: 065

REACTIONS (5)
  - Oesophageal varices haemorrhage [Recovered/Resolved]
  - Shock haemorrhagic [Recovering/Resolving]
  - Haematemesis [Unknown]
  - Porto-sinusoidal vascular disorder [Unknown]
  - Off label use [Unknown]
